FAERS Safety Report 23546767 (Version 1)
Quarter: 2024Q1

REPORT INFORMATION
  Report Type: Spontaneous
  Country: CA (occurrence: CA)
  Receive Date: 20240221
  Receipt Date: 20240221
  Transmission Date: 20240410
  Serious: Yes (Other)
  Sender: FDA-Public Use
  Company Number: CA-ROCHE-2782441

PATIENT
  Age: 35 Year
  Sex: Male

DRUGS (14)
  1. CLONAZEPAM [Interacting]
     Active Substance: CLONAZEPAM
     Indication: Poor quality sleep
  2. QUETIAPINE [Interacting]
     Active Substance: QUETIAPINE
     Indication: Bipolar I disorder
  3. ARIPIPRAZOLE [Interacting]
     Active Substance: ARIPIPRAZOLE
     Indication: Psychotic disorder
     Route: 030
  4. ARIPIPRAZOLE [Interacting]
     Active Substance: ARIPIPRAZOLE
     Indication: Psychotic disorder
     Route: 048
  5. BENZTROPINE [Interacting]
     Active Substance: BENZTROPINE
     Indication: Dystonia
  6. LEVOMEPROMAZINE [Interacting]
     Active Substance: LEVOMEPROMAZINE
     Indication: Poor quality sleep
  7. LITHIUM CARBONATE [Interacting]
     Active Substance: LITHIUM CARBONATE
     Route: 048
  8. LIBRIUM [Interacting]
     Active Substance: CHLORDIAZEPOXIDE HYDROCHLORIDE
     Indication: Poor quality sleep
  9. TEMAZEPAM [Interacting]
     Active Substance: TEMAZEPAM
     Indication: Poor quality sleep
  10. ZOPICLONE [Interacting]
     Active Substance: ZOPICLONE
     Indication: Poor quality sleep
  11. OXAZEPAM [Interacting]
     Active Substance: OXAZEPAM
     Indication: Poor quality sleep
  12. LORAZEPAM [Concomitant]
     Active Substance: LORAZEPAM
  13. VORTIOXETINE [Concomitant]
     Active Substance: VORTIOXETINE
     Indication: Antidepressant therapy
     Route: 048
  14. SERTRALINE [Concomitant]
     Active Substance: SERTRALINE HYDROCHLORIDE
     Indication: Bipolar I disorder

REACTIONS (5)
  - Drug interaction [Unknown]
  - Dystonia [Unknown]
  - Dystonic tremor [Unknown]
  - Restlessness [Unknown]
  - Off label use [Unknown]
